FAERS Safety Report 8262303-2 (Version None)
Quarter: 2012Q1

REPORT INFORMATION
  Report Type: 
  Country: None (occurrence: None)
  Receive Date: 20120327
  Receipt Date: 20090527
  Transmission Date: 20120608
  Serious: Yes (Other)
  Sender: FDA-Public Use
  Company Number: PHEH2009US04165

PATIENT
  Age: 61 Year
  Sex: Female

DRUGS (2)
  1. GLEEVEC [Suspect]
     Indication: ACUTE LYMPHOCYTIC LEUKAEMIA
     Dosage: 600 MG, QD, ORAL
     Route: 048
     Dates: start: 20090119
  2. ASPARAGINASE (ASPARAGINASE) [Suspect]

REACTIONS (4)
  - DIARRHOEA [None]
  - BLOOD BILIRUBIN INCREASED [None]
  - NAUSEA [None]
  - HEPATIC ENZYME INCREASED [None]
